FAERS Safety Report 8591335-X (Version None)
Quarter: 2012Q3

REPORT INFORMATION
  Report Type: 
  Country: None (occurrence: None)
  Receive Date: 20120801
  Receipt Date: 20120718
  Transmission Date: 20120928
  Serious: Yes (Hospitalization, Other)
  Sender: FDA-Public Use
  Company Number: 2012FR0241

PATIENT
  Age: 37 Year
  Sex: Female

DRUGS (7)
  1. PREDNISONE TAB [Concomitant]
  2. CORTICOTHERAPY [Concomitant]
  3. CIPROFLOXACIN [Concomitant]
  4. FLAGYL [Concomitant]
  5. PREDNISONE TAB [Concomitant]
  6. XINERET (ANAKINRA) (100 MILLIGRAM, SUSPENSION FOR INJECTION IN PRE-FIL [Suspect]
     Indication: PYODERMA GANGRENOSUM
     Dosage: 100 MG (100 MG, 1 IN 1 D) SUBCUTANEOUS
     Route: 058
     Dates: start: 20120402
  7. DUAL-ANTIBIOTIC THERAPY (DUAL-ANTIBIOTIC) [Concomitant]

REACTIONS (3)
  - OESOPHAGEAL VARICES HAEMORRHAGE [None]
  - DIARRHOEA [None]
  - RECTAL HAEMORRHAGE [None]
